FAERS Safety Report 11235891 (Version 1)
Quarter: 2015Q3

REPORT INFORMATION
  Report Type: Spontaneous
  Country: US (occurrence: US)
  Receive Date: 20150702
  Receipt Date: 20150702
  Transmission Date: 20151125
  Serious: No
  Sender: FDA-Public Use
  Company Number: US-009507513-1506USA009848

PATIENT
  Age: 25 Year
  Sex: Female
  Weight: 104.31 kg

DRUGS (1)
  1. NEXPLANON [Suspect]
     Active Substance: ETONOGESTREL
     Indication: CONTRACEPTION
     Dosage: 1 ROD (1 DF) 3 YEARS, THERAPY ROUTE: LEFT ARM
     Route: 059
     Dates: start: 20150611

REACTIONS (4)
  - Weight decreased [Unknown]
  - Mood swings [Unknown]
  - Hyperhidrosis [Unknown]
  - Expired product administered [Unknown]

NARRATIVE: CASE EVENT DATE: 201506
